FAERS Safety Report 11499607 (Version 1)
Quarter: 2015Q3

REPORT INFORMATION
  Report Type: Spontaneous
  Country: US (occurrence: US)
  Receive Date: 20150914
  Receipt Date: 20150914
  Transmission Date: 20151125
  Serious: Yes (Other)
  Sender: FDA-Public Use
  Company Number: US-AMGEN-USASP2015092896

PATIENT
  Age: 83 Year
  Sex: Male

DRUGS (1)
  1. ARANESP [Suspect]
     Active Substance: DARBEPOETIN ALFA
     Indication: HAEMOCHROMATOSIS
     Dosage: UNK, Q3WK
     Route: 065
     Dates: start: 201501

REACTIONS (7)
  - Red blood cell count abnormal [Unknown]
  - Urticaria [Unknown]
  - Myelodysplastic syndrome [Unknown]
  - Hepatic cirrhosis [Unknown]
  - Off label use [Unknown]
  - Splenomegaly [Unknown]
  - Rash macular [Unknown]

NARRATIVE: CASE EVENT DATE: 201502
